FAERS Safety Report 9971299 (Version 1)
Quarter: 2014Q1

REPORT INFORMATION
  Report Type: Spontaneous
  Country: US (occurrence: None)
  Receive Date: 20140127
  Receipt Date: 20140127
  Transmission Date: 20141002
  Serious: Yes (Hospitalization)
  Sender: FDA-Public Use
  Company Number: 1267872

PATIENT
  Sex: Female

DRUGS (1)
  1. RITUXAN [Suspect]
     Indication: GRANULOMATOSIS WITH POLYANGIITIS

REACTIONS (2)
  - Lung infection [None]
  - Atypical mycobacterial infection [None]
